FAERS Safety Report 6555096-8 (Version None)
Quarter: 2010Q1

REPORT INFORMATION
  Report Type: 
  Country: None (occurrence: None)
  Receive Date: 20100126
  Receipt Date: 20100126
  Transmission Date: 20100710
  Serious: No
  Sender: FDA-Public Use
  Company Number: None

PATIENT
  Sex: Female
  Weight: 86.1834 kg

DRUGS (4)
  1. HYDROCODONE BITARTRATE AND ACETAMINOPHEN [Suspect]
     Indication: MIGRAINE
     Dosage: 1 TABLET EVERY 6 HOURS PRN PO
     Route: 048
     Dates: start: 20091130, end: 20100125
  2. STRATTERA [Concomitant]
  3. IMITREX [Concomitant]
  4. PRISTIQ [Concomitant]

REACTIONS (5)
  - DRY MOUTH [None]
  - NO THERAPEUTIC RESPONSE [None]
  - PRODUCT QUALITY ISSUE [None]
  - PRURITUS [None]
  - RESTLESSNESS [None]
